FAERS Safety Report 10239899 (Version 1)
Quarter: 2014Q2

REPORT INFORMATION
  Report Type: Report from Study
  Country: US (occurrence: US)
  Receive Date: 20140616
  Receipt Date: 20140616
  Transmission Date: 20141212
  Serious: Yes (Hospitalization, Other)
  Sender: FDA-Public Use
  Company Number: US-ABBVIE-14P-163-1245314-00

PATIENT
  Age: 79 Year
  Sex: Female

DRUGS (9)
  1. HUMIRA [Suspect]
     Indication: RHEUMATOID ARTHRITIS
  2. METOPROLOL [Concomitant]
     Indication: HYPERTENSION
  3. FOLIC ACID [Concomitant]
     Indication: PRODUCT USED FOR UNKNOWN INDICATION
  4. ASPIRIN [Concomitant]
     Indication: CARDIAC DISORDER
  5. CRESTOR [Concomitant]
     Indication: BLOOD CHOLESTEROL INCREASED
  6. POTASSIUM GLUCONATE [Concomitant]
     Indication: BLOOD POTASSIUM DECREASED
  7. OSCAL [Concomitant]
     Indication: PRODUCT USED FOR UNKNOWN INDICATION
  8. CENTRUM SILVER [Concomitant]
     Indication: PRODUCT USED FOR UNKNOWN INDICATION
  9. METHOTREXATE [Concomitant]
     Indication: PRODUCT USED FOR UNKNOWN INDICATION
     Dosage: 4 PILLS

REACTIONS (15)
  - Panic reaction [Unknown]
  - Hip fracture [Recovering/Resolving]
  - Chest pain [Unknown]
  - Urinary tract infection [Unknown]
  - Fungal infection [Unknown]
  - Wrong technique in drug usage process [Unknown]
  - Fall [Recovering/Resolving]
  - Urinary tract infection [Unknown]
  - Urinary tract infection [Unknown]
  - Hip fracture [Unknown]
  - Hip arthroplasty [Unknown]
  - Fall [Unknown]
  - Injection site pain [Unknown]
  - Blood pressure abnormal [Unknown]
  - Pain [Unknown]
